FAERS Safety Report 5901282-7 (Version None)
Quarter: 2008Q3

REPORT INFORMATION
  Report Type: 
  Country: None (occurrence: None)
  Receive Date: 20080924
  Receipt Date: 20080108
  Transmission Date: 20090109
  Serious: Yes (Hospitalization)
  Sender: FDA-Public Use
  Company Number: STI-2008-01476

PATIENT
  Age: 72 Year
  Sex: Female

DRUGS (12)
  1. CLOBETASOL PROPIONATE [Suspect]
     Indication: PSORIASIS
     Dosage: (DAILY),  TRUNK, ARMS AND LEGS
  2. UVB PHOTOTHERAPY [Concomitant]
  3. UVA PHOTOCHEMOTRHERAPY [Concomitant]
  4. ACITRETIN [Concomitant]
  5. METHOTREXATE [Concomitant]
  6. FUMARIC ACID (FUMARIC ACID) [Concomitant]
  7. CYCLOSPORINE [Concomitant]
  8. ENALAPRIL MALEATE [Concomitant]
  9. FUROSEMIDE [Concomitant]
  10. IBUPROFEN [Concomitant]
  11. COAL TAR (COAL  TAR) [Concomitant]
  12. DITHRANOL (DITHRANOL) [Concomitant]

REACTIONS (14)
  - ADRENAL INSUFFICIENCY [None]
  - BACK PAIN [None]
  - COMPRESSION FRACTURE [None]
  - CONTUSION [None]
  - CUSHING'S SYNDROME [None]
  - ECCHYMOSIS [None]
  - MUSCULAR WEAKNESS [None]
  - NAUSEA [None]
  - OEDEMA PERIPHERAL [None]
  - PITTING OEDEMA [None]
  - PYREXIA [None]
  - URINARY TRACT INFECTION [None]
  - VOMITING [None]
  - WEIGHT INCREASED [None]
